FAERS Safety Report 18630209 (Version 1)
Quarter: 2020Q4

REPORT INFORMATION
  Report Type: Spontaneous
  Country: CN (occurrence: CN)
  Receive Date: 20201217
  Receipt Date: 20201217
  Transmission Date: 20210114
  Serious: Yes (Hospitalization, Other)
  Sender: FDA-Public Use
  Company Number: CN-ABBVIE-20K-035-3695058-00

PATIENT
  Age: 20 Year
  Sex: Male
  Weight: 50.5 kg

DRUGS (1)
  1. HUMIRA [Suspect]
     Active Substance: ADALIMUMAB
     Indication: CROHN^S DISEASE
     Route: 058
     Dates: start: 20201020, end: 20201020

REACTIONS (7)
  - Intestinal obstruction [Recovering/Resolving]
  - White blood cell count increased [Unknown]
  - Rash [Unknown]
  - Pyrexia [Unknown]
  - Platelet count decreased [Unknown]
  - Intestinal obstruction [Unknown]
  - Abdominal distension [Unknown]

NARRATIVE: CASE EVENT DATE: 20201025
